FAERS Safety Report 12366289 (Version 1)
Quarter: 2016Q2

REPORT INFORMATION
  Report Type: Spontaneous
  Country: JP (occurrence: JP)
  Receive Date: 20160513
  Receipt Date: 20160513
  Transmission Date: 20160815
  Serious: Yes (Hospitalization)
  Sender: FDA-Public Use
  Company Number: JP-ASTRAZENECA-2016SE50685

PATIENT
  Age: 76 Year
  Sex: Female
  Weight: 34 kg

DRUGS (4)
  1. SYMMETREL [Concomitant]
     Active Substance: AMANTADINE HYDROCHLORIDE
     Dates: start: 201206
  2. SEROQUEL [Suspect]
     Active Substance: QUETIAPINE FUMARATE
     Indication: HALLUCINATION
     Route: 048
     Dates: start: 20160307, end: 20160312
  3. MAGMITT [Concomitant]
     Active Substance: MAGNESIUM OXIDE
  4. MENESIT [Concomitant]
     Active Substance: CARBIDOPA\LEVODOPA
     Dates: start: 201207

REACTIONS (3)
  - Product use issue [Unknown]
  - Neuroleptic malignant syndrome [Recovered/Resolved]
  - Off label use [Unknown]

NARRATIVE: CASE EVENT DATE: 20160307
